FAERS Safety Report 24468309 (Version 1)
Quarter: 2024Q4

REPORT INFORMATION
  Report Type: Spontaneous
  Country: US (occurrence: US)
  Receive Date: 20241018
  Receipt Date: 20241018
  Transmission Date: 20250115
  Serious: Yes (Other)
  Sender: RANBAXY
  Company Number: US-SUN PHARMACEUTICAL INDUSTRIES LTD-2024R1-473878

PATIENT
  Age: 56 Year
  Sex: Male

DRUGS (15)
  1. CLOZAPINE [Suspect]
     Active Substance: CLOZAPINE
     Indication: Schizoaffective disorder bipolar type
     Dosage: 350 MILLIGRAM, DAILY
     Route: 065
  2. CLOZAPINE [Suspect]
     Active Substance: CLOZAPINE
     Dosage: 550 MILLIGRAM, DAILY
     Route: 065
  3. OXCARBAZEPINE [Suspect]
     Active Substance: OXCARBAZEPINE
     Indication: Schizoaffective disorder bipolar type
     Dosage: 1500 MILLIGRAM, DAILY
     Route: 065
  4. OXCARBAZEPINE [Suspect]
     Active Substance: OXCARBAZEPINE
     Dosage: 1200 MILLIGRAM, DAILY
     Route: 065
  5. PALIPERIDONE [Suspect]
     Active Substance: PALIPERIDONE
     Indication: Schizoaffective disorder bipolar type
     Dosage: 117 MILLIGRAM, EVERY 28 DAYS
     Route: 030
  6. PALIPERIDONE [Suspect]
     Active Substance: PALIPERIDONE
     Dosage: 234 MILLIGRAM, EVERY 28 DAYS
     Route: 030
     Dates: start: 2022
  7. PALIPERIDONE [Suspect]
     Active Substance: PALIPERIDONE
     Dosage: 156 MILLIGRAM, EVERY 28 DAYS
     Route: 030
     Dates: start: 2022
  8. QUETIAPINE [Suspect]
     Active Substance: QUETIAPINE
     Indication: Schizoaffective disorder bipolar type
     Dosage: 400 MILLIGRAM, DAILY
     Route: 065
  9. QUETIAPINE [Suspect]
     Active Substance: QUETIAPINE
     Dosage: 650 MILLIGRAM, DAILY
     Route: 065
     Dates: start: 202302
  10. BENZTROPINE [Concomitant]
     Active Substance: BENZTROPINE
     Indication: Schizoaffective disorder bipolar type
     Dosage: 4 MILLIGRAM, DAILY
     Route: 065
  11. FLUVOXAMINE [Concomitant]
     Active Substance: FLUVOXAMINE
     Indication: Schizoaffective disorder bipolar type
     Dosage: 200 MILLIGRAM, DAILY
     Route: 065
  12. GLYCOPYRROLATE [Concomitant]
     Active Substance: GLYCOPYRROLATE
     Indication: Schizoaffective disorder bipolar type
     Dosage: 3 MILLIGRAM, DAILY
     Route: 065
  13. LORAZEPAM [Concomitant]
     Active Substance: LORAZEPAM
     Indication: Schizoaffective disorder bipolar type
     Dosage: 2 MILLIGRAM, DAILY
     Route: 065
  14. VENLAFAXINE [Concomitant]
     Active Substance: VENLAFAXINE HYDROCHLORIDE
     Indication: Depression
     Dosage: 37.5 MILLIGRAM, DAILY
     Route: 065
     Dates: start: 202211
  15. VENLAFAXINE [Concomitant]
     Active Substance: VENLAFAXINE HYDROCHLORIDE
     Indication: Anxiety

REACTIONS (5)
  - Therapy non-responder [Unknown]
  - Drooling [Unknown]
  - Sedation [Unknown]
  - Constipation [Unknown]
  - Extrapyramidal disorder [Unknown]
